FAERS Safety Report 8598115-X (Version None)
Quarter: 2012Q3

REPORT INFORMATION
  Report Type: 
  Country: None (occurrence: None)
  Receive Date: 20120816
  Receipt Date: 20120808
  Transmission Date: 20120928
  Serious: Yes (Hospitalization, Other)
  Sender: FDA-Public Use
  Company Number: US-PFIZER INC-2012194641

PATIENT
  Age: 38 Year
  Sex: Female

DRUGS (4)
  1. DIPHENHYDRAMINE HYDROCHLORIDE [Concomitant]
     Dosage: UNK
  2. PHENOBARBITAL [Concomitant]
     Dosage: UNK
  3. PHENYTOIN [Suspect]
     Indication: GRAND MAL CONVULSION
     Dosage: UNK
  4. DIAZEPAM [Concomitant]
     Dosage: UNK

REACTIONS (4)
  - RENAL FAILURE ACUTE [None]
  - DERMATITIS EXFOLIATIVE [None]
  - DRUG RASH WITH EOSINOPHILIA AND SYSTEMIC SYMPTOMS [None]
  - MYOSITIS [None]
